FAERS Safety Report 21720766 (Version 7)
Quarter: 2023Q2

REPORT INFORMATION
  Report Type: Report from Study
  Country: US (occurrence: US)
  Receive Date: 20221213
  Receipt Date: 20230412
  Transmission Date: 20230721
  Serious: No
  Sender: FDA-Public Use
  Company Number: US-002147023-NVSC2022US288514

PATIENT
  Sex: Male

DRUGS (1)
  1. PROMACTA [Suspect]
     Active Substance: ELTROMBOPAG OLAMINE
     Indication: Immune thrombocytopenia
     Dosage: UNK (FOR 10 DAYS)
     Route: 065

REACTIONS (4)
  - Platelet count decreased [Unknown]
  - Lower respiratory tract infection [Unknown]
  - Platelet count increased [Unknown]
  - Pain in extremity [Unknown]
